FAERS Safety Report 24712387 (Version 5)
Quarter: 2025Q1

REPORT INFORMATION
  Report Type: Spontaneous
  Country: DE (occurrence: DE)
  Receive Date: 20241209
  Receipt Date: 20250206
  Transmission Date: 20250409
  Serious: Yes (Life-Threatening, Other)
  Sender: MYLAN
  Company Number: DE-Desitin-2024-02876

PATIENT
  Sex: Male

DRUGS (9)
  1. LAMOTRIGINE [Suspect]
     Active Substance: LAMOTRIGINE
     Indication: Occipital lobe epilepsy
     Route: 065
  2. LEVETIRACETAM [Suspect]
     Active Substance: LEVETIRACETAM
     Indication: Occipital lobe epilepsy
     Route: 065
  3. VALPROIC ACID [Suspect]
     Active Substance: VALPROIC ACID
     Indication: Occipital lobe epilepsy
     Route: 065
  4. OXCARBAZEPINE [Suspect]
     Active Substance: OXCARBAZEPINE
     Indication: Occipital lobe epilepsy
     Route: 065
  5. ESCITALOPRAM [Suspect]
     Active Substance: ESCITALOPRAM OXALATE
     Indication: Occipital lobe epilepsy
     Route: 065
  6. ZONISAMIDE [Suspect]
     Active Substance: ZONISAMIDE
     Indication: Occipital lobe epilepsy
     Route: 065
  7. LACOSAMIDE [Suspect]
     Active Substance: LACOSAMIDE
     Indication: Occipital lobe epilepsy
     Route: 065
  8. SULTHIAME [Suspect]
     Active Substance: SULTHIAME
     Indication: Occipital lobe epilepsy
     Route: 065
  9. ETHOSUXIMIDE [Suspect]
     Active Substance: ETHOSUXIMIDE
     Indication: Occipital lobe epilepsy
     Route: 065

REACTIONS (14)
  - Suicidal ideation [Unknown]
  - Thinking abnormal [Unknown]
  - Generalised tonic-clonic seizure [Unknown]
  - Seizure [Unknown]
  - Bradykinesia [Unknown]
  - Electroencephalogram abnormal [Unknown]
  - General physical health deterioration [Unknown]
  - Polydipsia [Unknown]
  - Panic attack [Unknown]
  - Nightmare [Unknown]
  - Tremor [Unknown]
  - Depression [Unknown]
  - Rash [Unknown]
  - Drug ineffective [Unknown]
